FAERS Safety Report 6715388-6 (Version None)
Quarter: 2010Q2

REPORT INFORMATION
  Report Type: 
  Country: None (occurrence: None)
  Receive Date: 20100507
  Receipt Date: 20100507
  Transmission Date: 20101027
  Serious: Yes (Life-Threatening, Hospitalization)
  Sender: FDA-Public Use
  Company Number: None

PATIENT
  Age: 22 Month
  Sex: Male
  Weight: 10.8863 kg

DRUGS (1)
  1. CHILDREN'S MOTRIN [Suspect]
     Indication: COUGH
     Dates: start: 20100413, end: 20100413

REACTIONS (5)
  - CYANOSIS [None]
  - EYE ROLLING [None]
  - MUSCULOSKELETAL STIFFNESS [None]
  - PRODUCT QUALITY ISSUE [None]
  - RESPIRATORY ARREST [None]
